FAERS Safety Report 6451591-0 (Version None)
Quarter: 2009Q4

REPORT INFORMATION
  Report Type: 
  Country: None (occurrence: None)
  Receive Date: 20091123
  Receipt Date: 20091119
  Transmission Date: 20100525
  Serious: Yes (Hospitalization)
  Sender: FDA-Public Use
  Company Number: DE-ABBOTT-09P-062-0609574-00

PATIENT
  Age: 73 Year
  Sex: Female
  Weight: 59 kg

DRUGS (11)
  1. HUMIRA [Suspect]
     Indication: RHEUMATOID ARTHRITIS
     Route: 058
     Dates: start: 20060101, end: 20090813
  2. PREDNISOLONE [Concomitant]
     Indication: RHEUMATOID ARTHRITIS
     Dosage: 5 MG OD
     Route: 048
     Dates: start: 19950101
  3. ASPIRIN [Concomitant]
     Indication: CORONARY ARTERY DISEASE
     Dosage: 100 MG OD
     Route: 048
  4. ARANESP [Concomitant]
     Indication: NEPHROGENIC ANAEMIA
     Dosage: 30 MICOGRAM OD
     Route: 042
     Dates: start: 20060101, end: 20090804
  5. CALCIMAGON [Concomitant]
     Indication: OSTEOPOROSIS PROPHYLAXIS
     Dosage: 500 MG + 4 MG DAILY
     Route: 048
     Dates: start: 20080101
  6. CORIFEO [Concomitant]
     Indication: HYPERTENSION
     Dosage: 20 MG OD
     Route: 048
     Dates: start: 20090601, end: 20090824
  7. DIGIMERCK [Concomitant]
     Indication: CORONARY ARTERY DISEASE
     Dosage: 0.05 MG OD
     Route: 048
     Dates: start: 20080101
  8. HYDROMORPHONE HCL [Concomitant]
     Indication: PAIN
     Dosage: 4 MG OD
     Route: 048
     Dates: start: 20090101
  9. MICARDIS [Concomitant]
     Indication: HYPERTENSION
     Dosage: 80 MG DAILY
     Route: 048
     Dates: start: 20060101
  10. PANTOZOL [Concomitant]
     Indication: PROPHYLAXIS AGAINST GASTROINTESTINAL ULCER
     Dosage: 40 MG DAILY
     Route: 048
     Dates: start: 20060101
  11. RESTEX [Concomitant]
     Indication: RESTLESS LEGS SYNDROME
     Dosage: 100 MG LEVODOPA + 25 MG BENSERAZID DAILY
     Route: 048
     Dates: start: 20060101

REACTIONS (7)
  - ASTHENIA [None]
  - BODY TEMPERATURE DECREASED [None]
  - DECREASED APPETITE [None]
  - DYSURIA [None]
  - GAIT DISTURBANCE [None]
  - POLLAKIURIA [None]
  - PYELONEPHRITIS [None]
